FAERS Safety Report 8559796-X (Version None)
Quarter: 2012Q3

REPORT INFORMATION
  Report Type: 
  Country: None (occurrence: None)
  Receive Date: 20120802
  Receipt Date: 20120727
  Transmission Date: 20120928
  Serious: No
  Sender: FDA-Public Use
  Company Number: US-PFIZER INC-2012185330

PATIENT
  Sex: Female
  Weight: 68.027 kg

DRUGS (2)
  1. ALLEGRA [Concomitant]
     Indication: HYPERSENSITIVITY
     Dosage: UNK
  2. PREMARIN [Suspect]
     Indication: HOT FLUSH
     Dosage: UNK
     Route: 067
     Dates: start: 20120101

REACTIONS (1)
  - DRUG INEFFECTIVE [None]
